FAERS Safety Report 7367830-8 (Version None)
Quarter: 2011Q1

REPORT INFORMATION
  Report Type: 
  Country: None (occurrence: None)
  Receive Date: 20110322
  Receipt Date: 20110310
  Transmission Date: 20110831
  Serious: Yes (Hospitalization, Other)
  Sender: FDA-Public Use
  Company Number: US-PFIZER INC-2010056761

PATIENT
  Sex: Male
  Weight: 75 kg

DRUGS (22)
  1. ALPRAZOLAM [Concomitant]
     Indication: NERVOUS SYSTEM DISORDER
     Dosage: 0.5 MG, 1X/DAY
     Route: 048
     Dates: start: 19980101
  2. NORVASC [Concomitant]
  3. AVODART [Concomitant]
     Indication: PROSTATIC DISORDER
     Dosage: 0.5 MG, 1X/DAY
     Route: 048
     Dates: start: 20070101
  4. UROXATRAL [Concomitant]
     Indication: PROSTATIC DISORDER
     Dosage: 10 MG, AT BED TIME
     Route: 048
     Dates: start: 20091101
  5. METOPROLOL TARTRATE [Concomitant]
     Indication: BLOOD PRESSURE ABNORMAL
     Dosage: 100 MG, 1X/DAY
     Route: 048
     Dates: start: 20050101
  6. QUINAPRIL HYDROCHLORIDE [Concomitant]
     Indication: BLOOD PRESSURE ABNORMAL
     Dosage: 40 MG, 1X/DAY
     Route: 048
     Dates: start: 20030101
  7. VITAMIN D [Concomitant]
     Indication: VITAMIN D DECREASED
  8. ZETIA [Concomitant]
     Indication: CARDIAC DISORDER
     Dosage: 10 MG, 1X/DAY
     Route: 048
     Dates: start: 20060101
  9. UROXATRAL [Concomitant]
     Indication: URINE FLOW DECREASED
  10. MULTI-VITAMINS [Concomitant]
  11. ALBUTEROL [Concomitant]
  12. ADVAIR DISKUS 100/50 [Concomitant]
     Dosage: 500 MG, UNK
  13. ARICEPT [Suspect]
     Indication: MEMORY IMPAIRMENT
     Dosage: 5 MG, DAILY
     Route: 048
     Dates: start: 20100414, end: 20100511
  14. ARICEPT [Suspect]
     Indication: DEMENTIA
     Dosage: 10 MG, 1X/DAY
     Route: 048
     Dates: start: 20100512, end: 20100601
  15. ARICEPT [Suspect]
     Dosage: 5 MG, DAILY
     Route: 048
     Dates: start: 20100601
  16. NAMENDA [Suspect]
     Indication: DEMENTIA
     Dosage: 5 MG, 1X/DAY
     Route: 048
     Dates: start: 20100921
  17. ALPRAZOLAM [Concomitant]
     Indication: ANXIETY
  18. DILTIAZEM [Concomitant]
     Indication: BLOOD PRESSURE
     Dosage: 360 MG, 1X/DAY
     Route: 048
     Dates: start: 20050101
  19. FUROSEMIDE [Concomitant]
     Dosage: 80 MG, UNK
     Route: 065
  20. POTASSIUM CHLORIDE [Concomitant]
     Indication: MINERAL SUPPLEMENTATION
     Dosage: 10 MILLIEQUIVALENT, 2X/DAY
     Route: 048
     Dates: start: 20050101
  21. FUROSEMIDE [Concomitant]
     Dosage: 40 MG, UNK
  22. AMBIEN [Concomitant]
     Route: 065

REACTIONS (25)
  - EYE IRRITATION [None]
  - INSOMNIA [None]
  - COLD SWEAT [None]
  - ASTHENIA [None]
  - URINE FLOW DECREASED [None]
  - OEDEMA PERIPHERAL [None]
  - DYSSTASIA [None]
  - STRESS [None]
  - NAUSEA [None]
  - SOMNOLENCE [None]
  - HEADACHE [None]
  - DEMENTIA [None]
  - ERYTHEMA [None]
  - DIARRHOEA [None]
  - DIZZINESS [None]
  - BACK PAIN [None]
  - VISION BLURRED [None]
  - PNEUMONIA BACTERIAL [None]
  - ABDOMINAL DISCOMFORT [None]
  - MALAISE [None]
  - VITAMIN D DECREASED [None]
  - NIGHTMARE [None]
  - GAIT DISTURBANCE [None]
  - DYSURIA [None]
  - BLADDER DISCOMFORT [None]
